FAERS Safety Report 20169023 (Version 1)
Quarter: 2021Q4

REPORT INFORMATION
  Report Type: Spontaneous
  Country: US (occurrence: US)
  Receive Date: 20211210
  Receipt Date: 20211210
  Transmission Date: 20220303
  Serious: Yes (Hospitalization, Other)
  Sender: FDA-Public Use
  Company Number: US-BAYER-2021A261520

PATIENT
  Age: 34 Year
  Sex: Female

DRUGS (1)
  1. LEVONORGESTREL [Suspect]
     Active Substance: LEVONORGESTREL
     Indication: Pain
     Dosage: UNK
     Route: 015
     Dates: start: 2021

REACTIONS (3)
  - Pelvic inflammatory disease [Recovered/Resolved with Sequelae]
  - Off label use of device [None]
  - Device use issue [None]
